FAERS Safety Report 6446984-1 (Version None)
Quarter: 2009Q4

REPORT INFORMATION
  Report Type: 
  Country: None (occurrence: None)
  Receive Date: 20091119
  Receipt Date: 20080530
  Transmission Date: 20100525
  Serious: Yes (Hospitalization)
  Sender: FDA-Public Use
  Company Number: FR-PFIZER INC-2009265448

PATIENT
  Age: 69 Year
  Sex: Male

DRUGS (10)
  1. EPIRUBICIN HCL [Suspect]
     Indication: GASTRIC CANCER
  2. CISPLATIN [Suspect]
     Indication: GASTRIC CANCER
  3. XELODA [Suspect]
     Indication: GASTRIC CANCER
  4. ACTISKENAN [Concomitant]
     Indication: PAIN
     Dosage: 10 MG X6/DAY
     Route: 048
     Dates: start: 20070111
  5. SKENAN [Concomitant]
     Indication: PAIN
     Dosage: 20 MG, 2X/DAY
     Route: 048
     Dates: start: 20070101
  6. STABLON [Concomitant]
     Indication: DEPRESSION
     Dosage: 1 DF, 3X/DAY
     Route: 048
     Dates: start: 20050101
  7. TRANXENE [Concomitant]
     Indication: DEPRESSION
     Dosage: 10 MG, 3X/DAY
     Dates: start: 20050101
  8. MOPRAL [Concomitant]
     Indication: GASTRITIS
     Dosage: 1 DF, UNK
     Route: 048
     Dates: start: 20070101
  9. MEPRONIZINE [Concomitant]
     Indication: DEPRESSION
     Dosage: UNK
  10. AUGMENTIN [Concomitant]
     Indication: INCREASED BRONCHIAL SECRETION
     Dosage: UNK

REACTIONS (1)
  - CONFUSIONAL STATE [None]
